FAERS Safety Report 6284698-1 (Version None)
Quarter: 2009Q3

REPORT INFORMATION
  Report Type: 
  Country: None (occurrence: None)
  Receive Date: 20090727
  Receipt Date: 20090714
  Transmission Date: 20100115
  Serious: Yes (Hospitalization)
  Sender: FDA-Public Use
  Company Number: US-ELI_LILLY_AND_COMPANY-US200907002989

PATIENT
  Age: 39 Year
  Sex: Female

DRUGS (3)
  1. ZYPREXA [Suspect]
     Indication: INSOMNIA
     Dosage: 1 D/F, UNK
     Dates: start: 20081201, end: 20090601
  2. ZYPREXA [Suspect]
     Dosage: 2.5 MG, UNK
     Dates: start: 20090701
  3. ZYPREXA [Suspect]
     Dosage: 5 MG, UNK
     Dates: start: 20090701

REACTIONS (5)
  - ALTERED STATE OF CONSCIOUSNESS [None]
  - HALLUCINATION [None]
  - INTENTIONAL DRUG MISUSE [None]
  - OFF LABEL USE [None]
  - OVERDOSE [None]
